FAERS Safety Report 7486747-1 (Version None)
Quarter: 2011Q2

REPORT INFORMATION
  Report Type: 
  Country: None (occurrence: None)
  Receive Date: 20110517
  Receipt Date: 20100917
  Transmission Date: 20111010
  Serious: No
  Sender: FDA-Public Use
  Company Number: US-NOVEN-ALL1-2010-04947

PATIENT
  Sex: Female

DRUGS (1)
  1. DAYTRANA [Suspect]
     Dosage: 10 MG, ONE DOSE
     Route: 062
     Dates: start: 20100101, end: 20100101

REACTIONS (3)
  - GASTRIC DISORDER [None]
  - PRODUCT QUALITY ISSUE [None]
  - ACCIDENTAL EXPOSURE [None]
